FAERS Safety Report 20829099 (Version 5)
Quarter: 2023Q1

REPORT INFORMATION
  Report Type: Spontaneous
  Country: US (occurrence: US)
  Receive Date: 20220513
  Receipt Date: 20230214
  Transmission Date: 20230418
  Serious: No
  Sender: FDA-Public Use
  Company Number: US-SA-SAC20220510000276

PATIENT
  Age: 20 Year
  Sex: Female

DRUGS (1)
  1. DUPIXENT [Suspect]
     Active Substance: DUPILUMAB
     Dosage: 300 MG, OTHER
     Route: 058
     Dates: start: 202203

REACTIONS (4)
  - Injection site haemorrhage [Unknown]
  - Injection site swelling [Not Recovered/Not Resolved]
  - Injection site bruising [Unknown]
  - Dry eye [Unknown]

NARRATIVE: CASE EVENT DATE: 20220101
